FAERS Safety Report 13586993 (Version 1)
Quarter: 2017Q2

REPORT INFORMATION
  Report Type: Spontaneous
  Country: ES (occurrence: ES)
  Receive Date: 20170526
  Receipt Date: 20170526
  Transmission Date: 20170830
  Serious: Yes (Other)
  Sender: FDA-Public Use
  Company Number: ES-APOPHARMA USA, INC.-2017AP012420

PATIENT
  Age: 10 Month
  Sex: Male

DRUGS (1)
  1. ALKERAN [Suspect]
     Active Substance: MELPHALAN
     Indication: RETINOBLASTOMA
     Dosage: 6 MG, SINGLE
     Route: 050

REACTIONS (2)
  - Retinal haemorrhage [Recovered/Resolved]
  - Chorioretinal atrophy [Unknown]
